FAERS Safety Report 8145068-4 (Version None)
Quarter: 2012Q1

REPORT INFORMATION
  Report Type: 
  Country: None (occurrence: None)
  Receive Date: 20120217
  Receipt Date: 20120205
  Transmission Date: 20120608
  Serious: Yes (Other)
  Sender: FDA-Public Use
  Company Number: PHHY2012PH012862

PATIENT

DRUGS (3)
  1. CYCLOSPORINE [Suspect]
     Indication: RENAL TRANSPLANT
     Dosage: 7 MG/KG, DAILY
  2. PREDNISONE [Concomitant]
     Dosage: 0.5 MG/KG, UNK
  3. MYCOPHENOLATE MOFETIL [Suspect]
     Indication: RENAL TRANSPLANT
     Dosage: 1,440 MG/D OR 2 G/D IN 2 DIVIDED DOSES

REACTIONS (3)
  - RENAL GRAFT LOSS [None]
  - CHRONIC ALLOGRAFT NEPHROPATHY [None]
  - KIDNEY TRANSPLANT REJECTION [None]
